FAERS Safety Report 14539658 (Version 2)
Quarter: 2018Q1

REPORT INFORMATION
  Report Type: Spontaneous
  Country: GR (occurrence: GR)
  Receive Date: 20180216
  Receipt Date: 20180308
  Transmission Date: 20180509
  Serious: Yes (Disabling)
  Sender: FDA-Public Use
  Company Number: GR-009507513-1802GRC003938

PATIENT
  Sex: Female

DRUGS (4)
  1. INEGY [Suspect]
     Active Substance: EZETIMIBE\SIMVASTATIN
     Dosage: 1 TABLET DAILY EVERY NIGHT
     Route: 048
     Dates: start: 1998
  2. LASIX [Concomitant]
     Active Substance: FUROSEMIDE
  3. INEGY [Suspect]
     Active Substance: EZETIMIBE\SIMVASTATIN
     Dosage: 1 TABLET DAILY EVERY NIGHT
     Route: 048
     Dates: start: 20180131, end: 20180203
  4. LEXOTANIL [Concomitant]
     Active Substance: BROMAZEPAM
     Dosage: UNK
     Dates: end: 20180205

REACTIONS (8)
  - Dysgeusia [Not Recovered/Not Resolved]
  - Product packaging issue [Unknown]
  - Blood cholesterol abnormal [Unknown]
  - Product taste abnormal [Unknown]
  - Insomnia [Not Recovered/Not Resolved]
  - Product physical issue [Unknown]
  - Adverse event [Unknown]
  - Toxicity to various agents [Unknown]

NARRATIVE: CASE EVENT DATE: 2017
